FAERS Safety Report 7980430-1 (Version None)
Quarter: 2011Q4

REPORT INFORMATION
  Report Type: 
  Country: None (occurrence: None)
  Receive Date: 20111214
  Receipt Date: 20111206
  Transmission Date: 20120403
  Serious: Yes (Hospitalization)
  Sender: FDA-Public Use
  Company Number: US-GLAXOSMITHKLINE-A0914643A

PATIENT
  Age: 63 Year
  Sex: Female

DRUGS (5)
  1. LISINOPRIL [Concomitant]
  2. ZOCOR [Concomitant]
  3. ATENOLOL [Concomitant]
  4. AVANDIA [Suspect]
     Indication: DIABETES MELLITUS
     Dosage: 8MG PER DAY
     Route: 048
     Dates: start: 20000101, end: 20060301
  5. HYDROCHLOROTHIAZIDE [Concomitant]

REACTIONS (7)
  - MYOCARDIAL INFARCTION [None]
  - ANAEMIA [None]
  - NON-OBSTRUCTIVE CARDIOMYOPATHY [None]
  - RENAL FAILURE [None]
  - RENAL IMPAIRMENT [None]
  - RENAL ARTERY STENOSIS [None]
  - CARDIAC FAILURE CONGESTIVE [None]
